FAERS Safety Report 6905679-8 (Version None)
Quarter: 2010Q3

REPORT INFORMATION
  Report Type: 
  Country: None (occurrence: None)
  Receive Date: 20100804
  Receipt Date: 20071226
  Transmission Date: 20110219
  Serious: No
  Sender: FDA-Public Use
  Company Number: PFIZER INC-2007108779

PATIENT
  Sex: Male
  Weight: 72.727 kg

DRUGS (2)
  1. CHANTIX [Suspect]
     Indication: SMOKING CESSATION THERAPY
     Dates: start: 20070101
  2. VITAMIN TAB [Concomitant]

REACTIONS (7)
  - ABNORMAL DREAMS [None]
  - CONSTIPATION [None]
  - DECREASED APPETITE [None]
  - DIZZINESS [None]
  - HEADACHE [None]
  - MEDICATION ERROR [None]
  - NAUSEA [None]
